FAERS Safety Report 24950998 (Version 2)
Quarter: 2025Q3

REPORT INFORMATION
  Report Type: Spontaneous
  Country: US (occurrence: US)
  Receive Date: 20250210
  Receipt Date: 20250815
  Transmission Date: 20251020
  Serious: Yes (Hospitalization, Other)
  Sender: BRISTOL-MYERS SQUIBB COMPANY
  Company Number: US-BRISTOL-MYERS SQUIBB COMPANY-2025-017014

PATIENT
  Age: 72 Year
  Sex: Female

DRUGS (1)
  1. POMALYST [Suspect]
     Active Substance: POMALIDOMIDE
     Indication: Primary amyloidosis
     Dosage: FREQUENCY: CYCLIC
     Route: 048

REACTIONS (4)
  - Haemoglobin decreased [Unknown]
  - Pulmonary oedema [Not Recovered/Not Resolved]
  - Off label use [Unknown]
  - Breast cancer [Unknown]
